FAERS Safety Report 4649886-6 (Version None)
Quarter: 2005Q2

REPORT INFORMATION
  Report Type: 
  Country: None (occurrence: None)
  Receive Date: 20050502
  Receipt Date: 20050323
  Transmission Date: 20051028
  Serious: Yes (Hospitalization)
  Sender: FDA-Public Use
  Company Number: US-MERCK-0503USA04029

PATIENT
  Age: 50 Year
  Sex: Male
  Weight: 140 kg

DRUGS (10)
  1. VIOXX [Suspect]
     Indication: ARTHRALGIA
     Route: 048
     Dates: start: 20040101, end: 20040101
  2. ZOLOFT [Concomitant]
     Route: 065
  3. ZYRTEC [Concomitant]
     Route: 065
  4. ZANTAC [Concomitant]
     Route: 065
  5. ADVAIR DISKUS 100/50 [Concomitant]
     Route: 065
  6. FLONASE [Concomitant]
     Route: 065
  7. NASONEX [Concomitant]
     Route: 065
  8. COMBIVENT [Concomitant]
     Route: 065
  9. ZESTRIL [Concomitant]
     Route: 065
  10. VIOXX [Suspect]
     Route: 048
     Dates: end: 20041012

REACTIONS (19)
  - ACUTE CORONARY SYNDROME [None]
  - ADVERSE EVENT [None]
  - ANEURYSM [None]
  - ANGINA UNSTABLE [None]
  - ASTHMA [None]
  - CORONARY ARTERY DISEASE [None]
  - COUGH [None]
  - DYSPEPSIA [None]
  - FATIGUE [None]
  - HYPERLIPIDAEMIA [None]
  - HYPERTENSION [None]
  - LUNG DISORDER [None]
  - NOCTURIA [None]
  - PAIN IN EXTREMITY [None]
  - POST PROCEDURAL COMPLICATION [None]
  - SINOBRONCHITIS [None]
  - SINUS BRADYCARDIA [None]
  - SINUSITIS [None]
  - TINNITUS [None]
